FAERS Safety Report 6924098-1 (Version None)
Quarter: 2010Q3

REPORT INFORMATION
  Report Type: 
  Country: None (occurrence: None)
  Receive Date: 20100813
  Receipt Date: 20100804
  Transmission Date: 20110219
  Serious: Yes (Death)
  Sender: FDA-Public Use
  Company Number: JP-ROCHE-720040

PATIENT

DRUGS (1)
  1. PEGASYS [Suspect]
     Indication: HEPATITIS C
     Route: 058

REACTIONS (2)
  - ADVERSE REACTION [None]
  - LIVER TRANSPLANT REJECTION [None]
